FAERS Safety Report 6628713-1 (Version None)
Quarter: 2010Q1

REPORT INFORMATION
  Report Type: 
  Country: None (occurrence: None)
  Receive Date: 20100311
  Receipt Date: 20100225
  Transmission Date: 20100710
  Serious: No
  Sender: FDA-Public Use
  Company Number: US-B.I. PHARMACEUTICALS,INC./RIDGEFIELD-2010-BP-02308BP

PATIENT
  Age: 81 Year
  Sex: Male

DRUGS (4)
  1. FLOMAX [Suspect]
     Indication: URINARY TRACT DISORDER
     Dosage: 0.4 MG
     Route: 048
     Dates: start: 20030101
  2. FLOMAX [Suspect]
     Indication: BLADDER DISORDER
  3. TIMINEL [Concomitant]
     Indication: OPEN ANGLE GLAUCOMA
  4. VITMAINS [Concomitant]
     Indication: PROPHYLAXIS

REACTIONS (3)
  - HYPERHIDROSIS [None]
  - LUNG NEOPLASM [None]
  - PALPITATIONS [None]
